FAERS Safety Report 13499249 (Version 1)
Quarter: 2017Q2

REPORT INFORMATION
  Report Type: Spontaneous
  Country: CH (occurrence: CH)
  Receive Date: 20170501
  Receipt Date: 20170501
  Transmission Date: 20170830
  Serious: Yes (Other)
  Sender: FDA-Public Use
  Company Number: CH-GLAXOSMITHKLINE-CH2017GSK048328

PATIENT
  Age: 39 Year
  Sex: Male

DRUGS (1)
  1. AXOTIDE DISKUS [Suspect]
     Active Substance: FLUTICASONE PROPIONATE
     Indication: OESOPHAGITIS
     Dosage: 250 ?G, 1D
     Route: 055
     Dates: start: 2014, end: 201703

REACTIONS (2)
  - Fungal oesophagitis [Unknown]
  - Off label use [Unknown]

NARRATIVE: CASE EVENT DATE: 2014
